FAERS Safety Report 10658080 (Version 3)
Quarter: 2015Q1

REPORT INFORMATION
  Report Type: Spontaneous
  Country: IN (occurrence: IN)
  Receive Date: 20141217
  Receipt Date: 20150212
  Transmission Date: 20150720
  Serious: Yes (Life-Threatening, Hospitalization, Disabling)
  Sender: FDA-Public Use
  Company Number: PHHY2014IN164251

PATIENT
  Age: 54 Year
  Sex: Female
  Weight: 62 kg

DRUGS (1)
  1. TEGRETOL [Suspect]
     Active Substance: CARBAMAZEPINE
     Indication: FACIAL PAIN
     Dosage: 0.5 DF (CARB 200 MG), BID (HALF TABLET IN MORNING AND HALF TABLET IN EVENING)
     Route: 048
     Dates: start: 20141112, end: 20141117

REACTIONS (8)
  - Skin disorder [Recovering/Resolving]
  - Headache [Unknown]
  - Wrong technique in drug usage process [Unknown]
  - Malaise [Unknown]
  - Pain [Unknown]
  - Dysphagia [Recovering/Resolving]
  - Skin burning sensation [Recovering/Resolving]
  - Fear [Unknown]

NARRATIVE: CASE EVENT DATE: 20141117
